FAERS Safety Report 21397858 (Version 1)
Quarter: 2022Q3

REPORT INFORMATION
  Report Type: Spontaneous
  Country: US (occurrence: US)
  Receive Date: 20220930
  Receipt Date: 20220930
  Transmission Date: 20221026
  Serious: No
  Sender: FDA-Public Use
  Company Number: None

PATIENT
  Sex: Female

DRUGS (1)
  1. VASCEPA [Suspect]
     Active Substance: ICOSAPENT ETHYL
     Indication: Product used for unknown indication
     Dosage: FREQUENCY TEXT : TWICE DAILY
     Route: 048

REACTIONS (2)
  - Blood triglycerides increased [Unknown]
  - Underdose [Unknown]

NARRATIVE: CASE EVENT DATE: 20210901
